FAERS Safety Report 13678711 (Version 1)
Quarter: 2017Q2

REPORT INFORMATION
  Report Type: Spontaneous
  Country: US (occurrence: US)
  Receive Date: 20170622
  Receipt Date: 20170622
  Transmission Date: 20170830
  Serious: No
  Sender: FDA-Public Use
  Company Number: US-SA-2017SA052947

PATIENT
  Age: 12 Year
  Sex: Male
  Weight: 40.8 kg

DRUGS (13)
  1. LIDOCAINE/PRILOCAINE [Concomitant]
     Indication: PREMEDICATION
     Route: 061
     Dates: start: 20170123
  2. SODIUM CHLORIDE. [Concomitant]
     Active Substance: SODIUM CHLORIDE
     Indication: FLUSHING
     Dates: start: 20170123
  3. CEREZYME [Suspect]
     Active Substance: IMIGLUCERASE
     Indication: GAUCHER^S DISEASE
     Dosage: DOSE:68.59 UNIT(S)/KILOGRAM BODYWEIGHT
     Route: 042
  4. CEREZYME [Suspect]
     Active Substance: IMIGLUCERASE
     Indication: LIPIDOSIS
     Dosage: DOSE:68.59 UNIT(S)/KILOGRAM BODYWEIGHT
     Route: 042
  5. DIPHENHYDRAMINE. [Concomitant]
     Active Substance: DIPHENHYDRAMINE
     Indication: ANAPHYLACTIC REACTION
     Dosage: DOSE:2.5 MILLIGRAM(S)/MILLILITRE
     Route: 048
     Dates: start: 20170123
  6. LANTUS [Concomitant]
     Active Substance: INSULIN GLARGINE
     Dosage: DOSE:10 UNIT(S)
     Route: 058
     Dates: start: 20170218
  7. NORMAL SALINE [Concomitant]
     Active Substance: SODIUM CHLORIDE
     Dates: start: 20170123
  8. EPIPEN [Concomitant]
     Active Substance: EPINEPHRINE
     Indication: ANAPHYLACTIC REACTION
     Dates: start: 20170123
  9. L-M-X [Concomitant]
     Indication: PREMEDICATION
     Route: 061
     Dates: start: 20170123
  10. HUMALOG [Concomitant]
     Active Substance: INSULIN LISPRO
     Dosage: DOSE:1 UNIT(S)
     Route: 058
     Dates: start: 20161213
  11. LEXAPRO [Concomitant]
     Active Substance: ESCITALOPRAM OXALATE
     Dosage: DOSE: 1 TAB AT BEDTIME
     Dates: start: 20161212
  12. ACETAMINOPHEN. [Concomitant]
     Active Substance: ACETAMINOPHEN
     Indication: PREMEDICATION
     Dosage: FREQUENCY: PRIOR TO INFUSION
     Route: 048
     Dates: start: 20170201
  13. HEPARIN [Concomitant]
     Active Substance: HEPARIN SODIUM
     Indication: FLUSHING
     Dosage: DOSE:100 INTERNATIONAL UNIT(S)/MILLILITRE
     Dates: start: 20170123

REACTIONS (1)
  - Influenza [Unknown]
